FAERS Safety Report 5479213-6 (Version None)
Quarter: 2007Q4

REPORT INFORMATION
  Report Type: 
  Country: None (occurrence: None)
  Receive Date: 20071008
  Receipt Date: 20070928
  Transmission Date: 20080405
  Serious: Yes (Other)
  Sender: FDA-Public Use
  Company Number: PHBS2007BR16203

PATIENT
  Age: 32 Year
  Sex: Female
  Weight: 60 kg

DRUGS (3)
  1. TRILEPTAL [Suspect]
     Dosage: 300MG/D
     Route: 048
     Dates: start: 20070201
  2. TRILEPTAL [Suspect]
     Dosage: 300 MG, BID
     Route: 065
     Dates: start: 20070301, end: 20070601
  3. LEXAPRO [Concomitant]
     Indication: DEPRESSION
     Dates: start: 20070201

REACTIONS (2)
  - AMENORRHOEA [None]
  - BLOOD PROLACTIN ABNORMAL [None]
